FAERS Safety Report 25607408 (Version 1)
Quarter: 2025Q3

REPORT INFORMATION
  Report Type: Spontaneous
  Country: US (occurrence: US)
  Receive Date: 20250725
  Receipt Date: 20250725
  Transmission Date: 20251020
  Serious: Yes (Other)
  Sender: ALEXION PHARMACEUTICALS
  Company Number: US-ASTRAZENECA-202507GLO012434US

PATIENT
  Age: 81 Year
  Sex: Male
  Weight: 107.5 kg

DRUGS (13)
  1. NEXIUM [Suspect]
     Active Substance: ESOMEPRAZOLE MAGNESIUM
  2. AMOXICILLIN [Concomitant]
     Active Substance: AMOXICILLIN
  3. COMPAZINE [Concomitant]
     Active Substance: PROCHLORPERAZINE MALEATE
  4. PRADAXA [Concomitant]
     Active Substance: DABIGATRAN ETEXILATE MESYLATE
  5. VITAMIN D3 [Concomitant]
     Active Substance: CHOLECALCIFEROL
  6. COLACE [Concomitant]
     Active Substance: DOCUSATE SODIUM
  7. NALOXONE [Concomitant]
     Active Substance: NALOXONE
  8. TYLENOL [Concomitant]
     Active Substance: ACETAMINOPHEN
  9. METOPROLOL [Concomitant]
     Active Substance: METOPROLOL
  10. MIDAZOLAM [Concomitant]
     Active Substance: MIDAZOLAM
  11. TOBRAMYCIN [Concomitant]
     Active Substance: TOBRAMYCIN
  12. ONDANSETRON [Concomitant]
     Active Substance: ONDANSETRON
  13. DOCUSATE [Concomitant]
     Active Substance: DOCUSATE

REACTIONS (1)
  - Adenocarcinoma gastric [Unknown]
